FAERS Safety Report 8395038-6 (Version None)
Quarter: 2012Q1

REPORT INFORMATION
  Report Type: 
  Country: None (occurrence: None)
  Receive Date: 20120323
  Receipt Date: 20110303
  Transmission Date: 20120608
  Serious: Yes (Disabling)
  Sender: FDA-Public Use
  Company Number: 163-21880-11031803

PATIENT
  Age: 83 Year
  Sex: Female

DRUGS (4)
  1. LISINOPRIL [Concomitant]
  2. AMLODIPINE [Concomitant]
  3. SYNTHROID [Concomitant]
  4. REVLIMID [Suspect]
     Indication: MULTIPLE MYELOMA
     Dosage: 25 MG, DAILY 21 DAYS, PO
     Route: 048
     Dates: start: 20110303

REACTIONS (3)
  - ABDOMINAL PAIN [None]
  - CONSTIPATION [None]
  - DECREASED APPETITE [None]
